FAERS Safety Report 17829090 (Version 2)
Quarter: 2021Q1

REPORT INFORMATION
  Report Type: Spontaneous
  Country: US (occurrence: US)
  Receive Date: 20200527
  Receipt Date: 20210304
  Transmission Date: 20210419
  Serious: No
  Sender: FDA-Public Use
  Company Number: US-VERTEX PHARMACEUTICALS-2020-011408

PATIENT
  Age: 29 Year
  Sex: Male
  Weight: 102 kg

DRUGS (1)
  1. TRIKAFTA [Suspect]
     Active Substance: ELEXACAFTOR\IVACAFTOR\TEZACAFTOR
     Indication: CYSTIC FIBROSIS
     Dosage: 2 TABLETS (100 MG ELEXACAFTOR/ 50 MG TEZACAFTOR/ 75 MG IVACAFTOR) AM; 1 TABLET (150MG IVACAFTOR) PM
     Route: 048
     Dates: start: 20200512

REACTIONS (6)
  - Productive cough [Unknown]
  - Paranasal sinus hypersecretion [Unknown]
  - Cholecystitis [Not Recovered/Not Resolved]
  - Bronchial disorder [Recovered/Resolved]
  - Increased bronchial secretion [Unknown]
  - Headache [Unknown]

NARRATIVE: CASE EVENT DATE: 202005
